FAERS Safety Report 15282068 (Version 1)
Quarter: 2018Q3

REPORT INFORMATION
  Report Type: Spontaneous
  Country: FR (occurrence: FR)
  Receive Date: 20180815
  Receipt Date: 20180815
  Transmission Date: 20181010
  Serious: Yes (Hospitalization)
  Sender: FDA-Public Use
  Company Number: FR-ANIPHARMA-2018-FR-000120

PATIENT
  Age: 56 Year
  Sex: Female
  Weight: 105 kg

DRUGS (5)
  1. CARTEOLOL [Concomitant]
     Active Substance: CARTEOLOL
  2. AERIUS [Concomitant]
     Active Substance: DESLORATADINE
     Route: 048
  3. PRAVASTATIN. [Concomitant]
     Active Substance: PRAVASTATIN
     Route: 048
  4. ARIMIDEX [Suspect]
     Active Substance: ANASTROZOLE
     Indication: BREAST CANCER
     Dosage: 1 DF DAILY
     Route: 048
     Dates: start: 201701
  5. LODOZ [Concomitant]
     Active Substance: BISOPROLOL FUMARATE\HYDROCHLOROTHIAZIDE
     Route: 048

REACTIONS (3)
  - Hypertransaminasaemia [Not Recovered/Not Resolved]
  - Hepatocellular injury [Not Recovered/Not Resolved]
  - Abdominal pain [Not Recovered/Not Resolved]

NARRATIVE: CASE EVENT DATE: 20180716
